FAERS Safety Report 12667622 (Version 2)
Quarter: 2017Q1

REPORT INFORMATION
  Report Type: Report from Study
  Country: BR (occurrence: BR)
  Receive Date: 20160819
  Receipt Date: 20170315
  Transmission Date: 20170428
  Serious: Yes (Other)
  Sender: FDA-Public Use
  Company Number: BR-BRISTOL-MYERS SQUIBB COMPANY-BMS-2016-067140

PATIENT
  Age: 70 Year
  Sex: Female

DRUGS (1)
  1. ABATACEPT [Suspect]
     Active Substance: ABATACEPT
     Indication: RHEUMATOID ARTHRITIS
     Dosage: 750 MG, QMO
     Route: 042

REACTIONS (4)
  - Spinal disorder [Recovering/Resolving]
  - Diverticulitis [Recovering/Resolving]
  - Sciatica [Recovering/Resolving]
  - Intervertebral disc operation [Recovering/Resolving]

NARRATIVE: CASE EVENT DATE: 201606
